FAERS Safety Report 9805336 (Version 1)
Quarter: 2014Q1

REPORT INFORMATION
  Report Type: Spontaneous
  Country: US (occurrence: None)
  Receive Date: 20140108
  Receipt Date: 20140108
  Transmission Date: 20141002
  Serious: No
  Sender: FDA-Public Use
  Company Number: None

PATIENT
  Age: 74 None
  Sex: Female

DRUGS (6)
  1. XARELTO 20 MG [Suspect]
     Indication: ANTICOAGULANT THERAPY
     Dosage: 1 PILL - PM  PM-1
     Route: 048
     Dates: start: 201311, end: 20131124
  2. XARELTO 20 MG [Suspect]
     Indication: ATRIAL FIBRILLATION
     Dosage: 1 PILL - PM  PM-1
     Route: 048
     Dates: start: 201311, end: 20131124
  3. BENZAPRIL [Concomitant]
  4. PRAVASTATIN [Concomitant]
  5. LEIOTHYROXIN [Concomitant]
  6. CARVEDILOL [Concomitant]

REACTIONS (2)
  - Blood urine present [None]
  - Melaena [None]
